FAERS Safety Report 6234844-0 (Version None)
Quarter: 2009Q2

REPORT INFORMATION
  Report Type: 
  Country: None (occurrence: None)
  Receive Date: 20090615
  Receipt Date: 20090608
  Transmission Date: 20091009
  Serious: Yes (Hospitalization)
  Sender: FDA-Public Use
  Company Number: FR-WYE-G03820109

PATIENT
  Age: 56 Year
  Sex: Male

DRUGS (15)
  1. METHOTREXATE [Suspect]
     Indication: PSORIATIC ARTHROPATHY
     Dosage: 15 MG 1X PER 1 WK ORAL; 20 MG TOTAL WEEKLY ORAL
     Route: 048
     Dates: start: 20050101, end: 20080918
  2. METHOTREXATE [Suspect]
     Indication: PSORIATIC ARTHROPATHY
     Dosage: 15 MG 1X PER 1 WK ORAL; 20 MG TOTAL WEEKLY ORAL
     Route: 048
     Dates: start: 20080919, end: 20090122
  3. ASPEGIC 1000 [Suspect]
     Indication: CORONARY ARTERIAL STENT INSERTION
     Dosage: 100 MG 1X PER 1 DAY ORAL
     Route: 048
     Dates: start: 20090101
  4. COVERSYL (PERINDOPRIL, , 0) [Suspect]
     Dosage: ORAL; 2 MG 1X PER 1 DAY ORAL
     Route: 048
     Dates: end: 20090415
  5. COVERSYL (PERINDOPRIL, , 0) [Suspect]
     Dosage: ORAL; 2 MG 1X PER 1 DAY ORAL
     Route: 048
     Dates: start: 20090515
  6. LANSOPRAZOLE [Suspect]
     Indication: GASTRITIS PROPHYLAXIS
     Dosage: 1 CAPSULE 1X PER 1 DAY INTRAVENOUS; 3 CAPSULES TOTAL DAILY ORAL
     Dates: start: 20090101, end: 20090101
  7. LANSOPRAZOLE [Suspect]
     Indication: GASTRITIS PROPHYLAXIS
     Dosage: 1 CAPSULE 1X PER 1 DAY INTRAVENOUS; 3 CAPSULES TOTAL DAILY ORAL
     Dates: start: 20080101, end: 20090428
  8. SALICYLIC ACID (SALICYLIC ACID, , 0) [Suspect]
     Indication: PSORIASIS
     Dosage: CUTANEOUS
     Route: 003
     Dates: start: 20090417, end: 20090428
  9. TAHOR (ATORVASTATIN, , 0) [Suspect]
     Dosage: 40 MG 1X PER 1 DAY ORAL; ORAL
     Route: 048
     Dates: end: 20090428
  10. TAHOR (ATORVASTATIN, , 0) [Suspect]
     Dosage: 40 MG 1X PER 1 DAY ORAL; ORAL
     Route: 048
     Dates: start: 20090515
  11. TAZOCILLINE (PIPERACILLIN/TAZOBACTAM, INJECTION) [Suspect]
     Indication: ANTIBIOTIC PROPHYLAXIS
     Dosage: 4 G 4X PER 1 DAY INTRAVENOUS
     Route: 042
     Dates: start: 20090407, end: 20090428
  12. VASELIN (PARAFFIN SOFT, , 0) [Suspect]
     Indication: PSORIASIS
     Dosage: CUTANEOUS
     Route: 003
     Dates: start: 20090417, end: 20090428
  13. TRETINOIN [Suspect]
     Indication: ACUTE PROMYELOCYTIC LEUKAEMIA
     Dosage: 90 MG 1X PER 1 DAY ORAL; 80 MG 1X PER 1 DAY ORAL
     Route: 048
     Dates: start: 20090204, end: 20090305
  14. TRETINOIN [Suspect]
     Indication: ACUTE PROMYELOCYTIC LEUKAEMIA
     Dosage: 90 MG 1X PER 1 DAY ORAL; 80 MG 1X PER 1 DAY ORAL
     Route: 048
     Dates: start: 20090324, end: 20090407
  15. IDARUBICIN HCL [Suspect]
     Indication: ACUTE PROMYELOCYTIC LEUKAEMIA
     Dosage: 22.4 MG 1X PER 2 DAY INTRAVENOUS
     Route: 042
     Dates: start: 20090324, end: 20090328

REACTIONS (4)
  - BONE MARROW TOXICITY [None]
  - CONDITION AGGRAVATED [None]
  - FEBRILE BONE MARROW APLASIA [None]
  - PSORIASIS [None]
